FAERS Safety Report 18235763 (Version 1)
Quarter: 2020Q3

REPORT INFORMATION
  Report Type: Spontaneous
  Country: DE (occurrence: DE)
  Receive Date: 20200905
  Receipt Date: 20200905
  Transmission Date: 20201103
  Serious: Yes (Other)
  Sender: FDA-Public Use
  Company Number: NVSC2020DE242941

PATIENT
  Age: 39 Year
  Sex: Female
  Weight: 65 kg

DRUGS (4)
  1. QUETIAPINE. [Suspect]
     Active Substance: QUETIAPINE
     Indication: BIPOLAR DISORDER
     Dosage: 150 MG, QD
     Route: 048
     Dates: start: 20190802, end: 20200305
  2. OVITRELLE [Concomitant]
     Active Substance: CHORIOGONADOTROPIN ALFA
     Indication: ASSISTED FERTILISATION
     Dosage: 6500 IU, QD
     Route: 058
     Dates: start: 20190814, end: 20190814
  3. FOLLITROPIN ALFA [Concomitant]
     Active Substance: FOLLITROPIN
     Indication: ASSISTED FERTILISATION
     Dosage: 50 IU, QD
     Route: 058
     Dates: start: 20190803, end: 20190813
  4. CYTOTEC [Concomitant]
     Active Substance: MISOPROSTOL
     Indication: ABORTION INDUCED
     Dosage: UNK
     Route: 067
     Dates: start: 20200305, end: 20200305

REACTIONS (1)
  - Maternal exposure during pregnancy [Unknown]
